FAERS Safety Report 8173089-4 (Version None)
Quarter: 2012Q1

REPORT INFORMATION
  Report Type: 
  Country: None (occurrence: None)
  Receive Date: 20120229
  Receipt Date: 20120220
  Transmission Date: 20120608
  Serious: Yes (Hospitalization)
  Sender: FDA-Public Use
  Company Number: CY-JNJFOC-20120210807

PATIENT
  Sex: Female

DRUGS (6)
  1. CALCIUM [Concomitant]
     Route: 065
  2. METHOTREXATE [Concomitant]
     Route: 065
  3. REMICADE [Suspect]
     Indication: RHEUMATOID ARTHRITIS
     Route: 042
     Dates: start: 20100101
  4. ALENDRONIC ACID [Concomitant]
     Route: 065
  5. REMICADE [Suspect]
     Route: 042
     Dates: start: 20120101
  6. OMEPRAZOLE [Concomitant]
     Route: 065

REACTIONS (1)
  - TUBERCULOSIS [None]
